FAERS Safety Report 6612598-3 (Version None)
Quarter: 2010Q1

REPORT INFORMATION
  Report Type: 
  Country: None (occurrence: None)
  Receive Date: 20100303
  Receipt Date: 20100219
  Transmission Date: 20100710
  Serious: Yes (Other)
  Sender: FDA-Public Use
  Company Number: IE-PFIZER INC-2010022627

PATIENT
  Age: 16 Year
  Sex: Male

DRUGS (2)
  1. SERTRALINE HYDROCHLORIDE [Suspect]
     Indication: OBSESSIVE-COMPULSIVE DISORDER
     Dosage: 175 MG
     Dates: start: 20081201
  2. MELATONIN [Concomitant]
     Dosage: 3 MG, 1X/DAY EVERY NIGHT

REACTIONS (2)
  - DIZZINESS [None]
  - RESTLESS LEGS SYNDROME [None]
